FAERS Safety Report 12648656 (Version 3)
Quarter: 2016Q3

REPORT INFORMATION
  Report Type: Spontaneous
  Country: US (occurrence: US)
  Receive Date: 20160812
  Receipt Date: 20160915
  Transmission Date: 20161109
  Serious: Yes (Other)
  Sender: FDA-Public Use
  Company Number: US-SA-2016SA144886

PATIENT
  Age: 87 Year
  Sex: Female
  Weight: 54.88 kg

DRUGS (4)
  1. LANTUS SOLOSTAR [Suspect]
     Active Substance: INSULIN GLARGINE
     Indication: DIABETES MELLITUS
     Dosage: DOSE:24 UNIT(S)
     Route: 065
  2. NOVOLOG [Concomitant]
     Active Substance: INSULIN ASPART
     Dosage: SLIDING SCALE
  3. LANTUS SOLOSTAR [Suspect]
     Active Substance: INSULIN GLARGINE
     Indication: DIABETES MELLITUS
     Dosage: DOSE:20 UNIT(S)
     Route: 065
     Dates: start: 1996
  4. SOLOSTAR [Concomitant]
     Active Substance: DEVICE
     Dates: start: 1996

REACTIONS (4)
  - Visual acuity reduced [Unknown]
  - Cardiac disorder [Unknown]
  - Ankle fracture [Unknown]
  - Wrong technique in product usage process [Unknown]

NARRATIVE: CASE EVENT DATE: 2016
